FAERS Safety Report 24264875 (Version 2)
Quarter: 2024Q3

REPORT INFORMATION
  Report Type: Spontaneous
  Country: IT (occurrence: IT)
  Receive Date: 20240829
  Receipt Date: 20240903
  Transmission Date: 20241016
  Serious: Yes (Death, Other)
  Sender: GILEAD
  Company Number: IT-GILEAD-2024-0685727

PATIENT
  Age: 54 Year
  Sex: Male

DRUGS (1)
  1. BREXUCABTAGENE AUTOLEUCEL [Suspect]
     Active Substance: BREXUCABTAGENE AUTOLEUCEL
     Indication: Mantle cell lymphoma recurrent
     Dosage: UNK
     Route: 065
     Dates: start: 20240812, end: 20240812

REACTIONS (4)
  - Haemorrhage [Fatal]
  - Cytopenia [Unknown]
  - Cytokine release syndrome [Unknown]
  - Nervous system disorder [Unknown]

NARRATIVE: CASE EVENT DATE: 20240824
